FAERS Safety Report 6059072-3 (Version None)
Quarter: 2009Q1

REPORT INFORMATION
  Report Type: 
  Country: None (occurrence: None)
  Receive Date: 20090130
  Receipt Date: 20090127
  Transmission Date: 20090719
  Serious: Yes (Other)
  Sender: FDA-Public Use
  Company Number: B0556141A

PATIENT

DRUGS (2)
  1. PAXIL [Suspect]
     Indication: DRUG USE FOR UNKNOWN INDICATION
     Route: 048
  2. FLUVOXAMINE MALEATE [Concomitant]
     Route: 048

REACTIONS (2)
  - DIABETES INSIPIDUS [None]
  - INAPPROPRIATE ANTIDIURETIC HORMONE SECRETION [None]
